FAERS Safety Report 24610563 (Version 1)
Quarter: 2024Q4

REPORT INFORMATION
  Report Type: Spontaneous
  Country: US (occurrence: US)
  Receive Date: 20241112
  Receipt Date: 20241112
  Transmission Date: 20250115
  Serious: Yes (Other)
  Sender: FRESENIUS MEDICAL CARE
  Company Number: US-FMCRTG-FMC-2410-001362

PATIENT
  Age: 78 Year
  Sex: Male
  Weight: 68 kg

DRUGS (1)
  1. DELFLEX WITH DEXTROSE 2.5% LOW MAGNESIUM LOW CALCIUM [Suspect]
     Active Substance: CALCIUM CHLORIDE\DEXTROSE\MAGNESIUM CHLORIDE\SODIUM CHLORIDE\SODIUM LACTATE
     Indication: End stage renal disease
     Dosage: EXCHANGES 6, FILL VOL 2300 ML, LAST FILL VOL 2100 ML CYC THERAPY VOL 15200 ML CYC THERAPY TIME12 HRS
     Route: 033

REACTIONS (1)
  - Peritonitis bacterial [Recovering/Resolving]

NARRATIVE: CASE EVENT DATE: 20241024
